FAERS Safety Report 25533253 (Version 1)
Quarter: 2025Q3

REPORT INFORMATION
  Report Type: Spontaneous
  Country: CA (occurrence: None)
  Receive Date: 20250709
  Receipt Date: 20250709
  Transmission Date: 20251020
  Serious: Yes (Other)
  Sender: ORION
  Company Number: CA-PFIZER INC-202500134799

PATIENT

DRUGS (6)
  1. METHOTREXATE [Suspect]
     Active Substance: METHOTREXATE
     Indication: Central nervous system lymphoma
  2. CYTARABINE [Suspect]
     Active Substance: CYTARABINE
     Indication: Central nervous system lymphoma
  3. RITUXIMAB [Suspect]
     Active Substance: RITUXIMAB
     Indication: Central nervous system lymphoma
  4. BUSULFAN [Suspect]
     Active Substance: BUSULFAN
     Indication: Central nervous system lymphoma
  5. PROCARBAZINE [Suspect]
     Active Substance: PROCARBAZINE
     Indication: Central nervous system lymphoma
  6. THIOTEPA [Suspect]
     Active Substance: THIOTEPA
     Indication: Central nervous system lymphoma

REACTIONS (2)
  - Brain neoplasm [Unknown]
  - Product use in unapproved indication [Unknown]
